FAERS Safety Report 7771729-2 (Version None)
Quarter: 2011Q3

REPORT INFORMATION
  Report Type: 
  Country: None (occurrence: None)
  Receive Date: 20110922
  Receipt Date: 20101116
  Transmission Date: 20111222
  Serious: No
  Sender: FDA-Public Use
  Company Number: US-ASTRAZENECA-2010SE54743

PATIENT
  Age: 15 Year
  Sex: Male

DRUGS (4)
  1. METHAMPHETAMINE HYDROCHLORIDE [Suspect]
  2. SEROQUEL XR [Suspect]
     Dosage: 1000 MG
     Route: 048
     Dates: start: 20101115, end: 20101115
  3. SEROQUEL XR [Suspect]
     Indication: SLEEP DISORDER
     Route: 048
     Dates: start: 20100901, end: 20101001
  4. WELLBUTRIN [Concomitant]

REACTIONS (3)
  - SOMNOLENCE [None]
  - FATIGUE [None]
  - DRUG ABUSE [None]
